FAERS Safety Report 6376229-2 (Version None)
Quarter: 2009Q3

REPORT INFORMATION
  Report Type: 
  Country: None (occurrence: None)
  Receive Date: 20090925
  Receipt Date: 20090923
  Transmission Date: 20100115
  Serious: Yes (Death, Hospitalization, Other)
  Sender: FDA-Public Use
  Company Number: US-BIOGENIDEC-2008BI001762

PATIENT
  Sex: Female

DRUGS (2)
  1. TYSABRI [Suspect]
     Indication: MULTIPLE SCLEROSIS
     Route: 042
     Dates: start: 20050105, end: 20050105
  2. TYSABRI [Suspect]
     Route: 042
     Dates: start: 20060825, end: 20071219

REACTIONS (7)
  - ADENOCARCINOMA PANCREAS [None]
  - INTRA-ABDOMINAL HAEMORRHAGE [None]
  - METASTASES TO LYMPH NODES [None]
  - METASTATIC GASTRIC CANCER [None]
  - POST PROCEDURAL HAEMORRHAGE [None]
  - SMALL INTESTINE CARCINOMA METASTATIC [None]
  - SQUAMOUS CELL CARCINOMA OF SKIN [None]
